FAERS Safety Report 23454305 (Version 1)
Quarter: 2024Q1

REPORT INFORMATION
  Report Type: Spontaneous
  Country: US (occurrence: US)
  Receive Date: 20240130
  Receipt Date: 20240130
  Transmission Date: 20240410
  Serious: Yes (Other)
  Sender: FDA-Public Use
  Company Number: US-SPECGX-T202400511

PATIENT
  Age: 27 Year
  Sex: Male

DRUGS (4)
  1. FENTANYL CITRATE [Suspect]
     Active Substance: FENTANYL CITRATE
     Indication: Product used for unknown indication
     Dosage: UNK
     Route: 065
  2. ALPRAZOLAM [Suspect]
     Active Substance: ALPRAZOLAM
     Indication: Product used for unknown indication
     Dosage: UNK
     Route: 065
  3. CARISOPRODOL [Suspect]
     Active Substance: CARISOPRODOL
     Indication: Product used for unknown indication
     Dosage: UNK
     Route: 065
  4. MEPROBAMATE [Suspect]
     Active Substance: MEPROBAMATE
     Indication: Product used for unknown indication
     Dosage: UNK
     Route: 065

REACTIONS (10)
  - Road traffic accident [Unknown]
  - Impaired driving ability [Unknown]
  - Substance use [Unknown]
  - Toxicity to various agents [Unknown]
  - Glassy eyes [Unknown]
  - Dysarthria [Unknown]
  - Balance disorder [Unknown]
  - Nystagmus [Unknown]
  - Disturbance in attention [Unknown]
  - Gait disturbance [Unknown]
